FAERS Safety Report 17288070 (Version 1)
Quarter: 2020Q1

REPORT INFORMATION
  Report Type: Report from Study
  Country: US (occurrence: US)
  Receive Date: 20200120
  Receipt Date: 20200120
  Transmission Date: 20200409
  Serious: Yes (Death)
  Sender: FDA-Public Use
  Company Number: US-BAYER-2020-005481

PATIENT
  Age: 70 Year
  Sex: Male

DRUGS (2)
  1. ADEMPAS [Suspect]
     Active Substance: RIOCIGUAT
     Dosage: 1.5 MG, TID
  2. ADEMPAS [Suspect]
     Active Substance: RIOCIGUAT
     Dosage: UNK

REACTIONS (1)
  - Death [Fatal]

NARRATIVE: CASE EVENT DATE: 20200101
